FAERS Safety Report 8166040-4 (Version None)
Quarter: 2012Q1

REPORT INFORMATION
  Report Type: 
  Country: None (occurrence: None)
  Receive Date: 20120227
  Receipt Date: 20110222
  Transmission Date: 20120608
  Serious: No
  Sender: FDA-Public Use
  Company Number: US-MYLANLABS-2011S1003750

PATIENT
  Age: 80 Year
  Sex: Female

DRUGS (3)
  1. AMNESTEEM [Suspect]
  2. AMNESTEEM [Suspect]
     Indication: TRANSIENT ACANTHOLYTIC DERMATOSIS
  3. AMNESTEEM [Suspect]

REACTIONS (2)
  - TRANSIENT ACANTHOLYTIC DERMATOSIS [None]
  - DRUG INEFFECTIVE FOR UNAPPROVED INDICATION [None]
